FAERS Safety Report 11146393 (Version 2)
Quarter: 2015Q3

REPORT INFORMATION
  Report Type: Spontaneous
  Country: US (occurrence: US)
  Receive Date: 20150528
  Receipt Date: 20150814
  Transmission Date: 20151125
  Serious: No
  Sender: FDA-Public Use
  Company Number: US-PFIZER INC-2015167903

PATIENT
  Age: 60 Year
  Sex: Female

DRUGS (28)
  1. LIPITOR [Suspect]
     Active Substance: ATORVASTATIN CALCIUM
     Dosage: 80 MG, 1X/DAY (1 TABLET AT BEDTIME)
     Dates: start: 20141204
  2. EFFEXOR XR [Concomitant]
     Active Substance: VENLAFAXINE HYDROCHLORIDE
     Dosage: 225 MG, DAILY
  3. PROAIR HFA [Concomitant]
     Active Substance: ALBUTEROL SULFATE
     Indication: COUGH
  4. COUMADIN [Concomitant]
     Active Substance: WARFARIN SODIUM
     Dosage: 5 MG, UNK
  5. FISH OIL CONCENTRATE [Concomitant]
     Dosage: 2000 UNK, 1X/DAY (1000 CAPS TWO EVERY DAY)
  6. CHLORTHALIDONE. [Concomitant]
     Active Substance: CHLORTHALIDONE
     Dosage: 25 MG, 1X/DAY
     Route: 048
  7. METFORMIN HCL [Concomitant]
     Active Substance: METFORMIN HYDROCHLORIDE
     Dosage: 1000 MG, 2X/DAY (2 TAB BY MOUTH IN AM AND 2 TAB IN PM)
     Route: 048
  8. MOBIC [Concomitant]
     Active Substance: MELOXICAM
     Indication: PAIN
     Dosage: 7.5 MG, TWICE DAILY AS NEEDED
     Route: 048
  9. HUMALOG [Concomitant]
     Active Substance: INSULIN LISPRO
     Dosage: 100 UNITS/1ML
  10. PROAIR HFA [Concomitant]
     Active Substance: ALBUTEROL SULFATE
     Indication: WHEEZING
     Dosage: 90 ?G, AS NEEDED (90MCG/LACTUATION ORAL INHALER 2 INHALATIONS EVERY 4 HOURS AS NEEDED)
     Route: 055
  11. ASMANEX [Concomitant]
     Active Substance: MOMETASONE FUROATE
     Dosage: 440 ?G, DAILY (220MCG INHALATION POWDER 2 PUFFS EVERY DAY)
  12. DILTIAZEM HCL [Concomitant]
     Active Substance: DILTIAZEM HYDROCHLORIDE
     Dosage: 300 MG, DAILY
     Route: 048
  13. ATIVAN [Concomitant]
     Active Substance: LORAZEPAM
     Dosage: 1 MG, 3X/DAY
  14. LEVEMIR [Concomitant]
     Active Substance: INSULIN DETEMIR
     Dosage: UNK, DAILY (40 U DAILY AT HS)
     Route: 058
  15. SEROQUEL [Concomitant]
     Active Substance: QUETIAPINE FUMARATE
     Dosage: 100 MG, 1X/DAY (AT BEDTIME)
  16. OXYCODONE HCL [Concomitant]
     Active Substance: OXYCODONE HYDROCHLORIDE
     Indication: PAIN
     Dosage: 5 MG, AS NEEDED ( FOUR TIMES A DAY )
     Route: 048
  17. PRAVACHOL [Concomitant]
     Active Substance: PRAVASTATIN SODIUM
     Dosage: 80 MG, DAILY
     Route: 048
  18. EXFORGE [Concomitant]
     Active Substance: AMLODIPINE BESYLATE\VALSARTAN
     Dosage: AMLODIPINE BESILATE 10MG /VALSARTAN 320MG
     Route: 048
  19. NOVOLOG [Concomitant]
     Active Substance: INSULIN ASPART
     Dosage: UNK, 3X/DAY (12 UNITS TID SC)
     Route: 058
  20. CITRACAL [Concomitant]
     Active Substance: CALCIUM CITRATE
     Dosage: UNK, 2X/DAY (CITRACAL PETITES WITH VITAMIN D TABLET TAKE 2 TABLET(S) BY MOUTH BID)
  21. COUMADIN [Concomitant]
     Active Substance: WARFARIN SODIUM
     Dosage: 1MG TABLET ONE TO THREE DAILY
  22. LAMICTAL [Concomitant]
     Active Substance: LAMOTRIGINE
     Dosage: 150 MG, 2X/DAY
     Route: 048
  23. UROCIT-K [Concomitant]
     Active Substance: POTASSIUM CITRATE
     Dosage: 10 MEQ, 3X/DAY
  24. NITROSTAT [Concomitant]
     Active Substance: NITROGLYCERIN
     Dosage: 0.4 MG, UNK (DISSOLVE 1 TABLET(S) UNDER THE TONGUE MAY REPEAT EVERY 5 MIN, MAX OF 3 DOSES IN 15 MIN)
  25. TYLENOL EXTRA STRENGTH [Concomitant]
     Active Substance: ACETAMINOPHEN
     Dosage: 500 MG, AS NEEDED (1 TO 2 TABLETS EVERY SIX HOURS AS NEEDED)
  26. VITAMIN D3 [Concomitant]
     Active Substance: CHOLECALCIFEROL
     Dosage: 50000 IU, WEEKLY
  27. FLEXERIL [Concomitant]
     Active Substance: CYCLOBENZAPRINE HYDROCHLORIDE
     Dosage: 10 MG, AS NEEDED (TWO TIMES A DAY AS NEEDED)
     Route: 048
  28. VITAMIN B12 [Concomitant]
     Active Substance: CYANOCOBALAMIN
     Dosage: 2000 ?G, WEEKLY (1,000 MCG TABLET 2 TABLETS WEEKLY )

REACTIONS (5)
  - Osteoarthritis [Unknown]
  - Drug hypersensitivity [Not Recovered/Not Resolved]
  - Palpitations [Recovering/Resolving]
  - Arthralgia [Recovering/Resolving]
  - Gait disturbance [Not Recovered/Not Resolved]

NARRATIVE: CASE EVENT DATE: 20141204
